FAERS Safety Report 6214060-9 (Version None)
Quarter: 2009Q2

REPORT INFORMATION
  Report Type: 
  Country: None (occurrence: None)
  Receive Date: 20090601
  Receipt Date: 20090601
  Transmission Date: 20091009
  Serious: No
  Sender: FDA-Public Use
  Company Number: None

PATIENT
  Age: 58 Year
  Sex: Female
  Weight: 63.5036 kg

DRUGS (1)
  1. LYRICA [Suspect]
     Indication: HYPOAESTHESIA
     Dosage: 50MG TWICE DAILY PO
     Route: 048
     Dates: start: 20090507, end: 20090529

REACTIONS (8)
  - ANXIETY [None]
  - DEPRESSION [None]
  - DIZZINESS [None]
  - DRUG TOXICITY [None]
  - NAUSEA [None]
  - PYREXIA [None]
  - SLEEP DISORDER [None]
  - SUICIDAL IDEATION [None]
